FAERS Safety Report 11975286 (Version 7)
Quarter: 2017Q2

REPORT INFORMATION
  Report Type: Report from Study
  Country: CA (occurrence: CA)
  Receive Date: 20160128
  Receipt Date: 20170601
  Transmission Date: 20170829
  Serious: Yes (Death, Hospitalization, Other)
  Sender: FDA-Public Use
  Company Number: PHHY2013CA016131

PATIENT
  Age: 66 Year
  Sex: Male

DRUGS (4)
  1. SANDOSTATIN LAR DEPOT [Suspect]
     Active Substance: OCTREOTIDE ACETATE
     Dosage: UNK
     Route: 030
     Dates: start: 20170502
  2. SANDOSTATIN LAR DEPOT [Suspect]
     Active Substance: OCTREOTIDE ACETATE
     Indication: NEUROENDOCRINE TUMOUR
     Dosage: 30 MG, QMO (EVERY 4 WEEKS)
     Route: 030
     Dates: start: 20130211
  3. SANDOSTATIN LAR DEPOT [Suspect]
     Active Substance: OCTREOTIDE ACETATE
     Dosage: 60 MG, QMO (EVERY 4 WEEKS)
     Route: 030
     Dates: start: 20160216
  4. SANDOSTATIN [Suspect]
     Active Substance: OCTREOTIDE ACETATE
     Indication: NEUROENDOCRINE TUMOUR
     Dosage: ONCE/SINGLE (TEST DOSE)
     Route: 058
     Dates: start: 20121219, end: 20121219

REACTIONS (11)
  - Peripheral swelling [Unknown]
  - Dizziness [Unknown]
  - Malignant neoplasm progression [Unknown]
  - Hernia [Unknown]
  - Chest injury [Unknown]
  - Death [Fatal]
  - Lung disorder [Unknown]
  - Incision site complication [Unknown]
  - Blood pressure systolic increased [Unknown]
  - Pleural effusion [Unknown]
  - Vomiting [Unknown]

NARRATIVE: CASE EVENT DATE: 20130211
